FAERS Safety Report 8577065-9 (Version None)
Quarter: 2012Q3

REPORT INFORMATION
  Report Type: 
  Country: None (occurrence: None)
  Receive Date: 20120807
  Receipt Date: 20120726
  Transmission Date: 20120928
  Serious: Yes (Life-Threatening, Hospitalization)
  Sender: FDA-Public Use
  Company Number: JP-JHP PHARMACEUTICALS, LLC-JHP201200364

PATIENT
  Sex: Female

DRUGS (8)
  1. DANTROLENE SODIUM [Concomitant]
     Indication: NEUROLEPTIC MALIGNANT SYNDROME
     Dosage: UNK
     Route: 042
     Dates: start: 20120703, end: 20120708
  2. DIAZEPAM [Concomitant]
     Indication: SCHIZOPHRENIA
     Dosage: UNK
     Dates: start: 20120709, end: 20120719
  3. RECOMODULIN [Concomitant]
     Indication: DISSEMINATED INTRAVASCULAR COAGULATION
     Dosage: UNK
     Dates: start: 20120703, end: 20120708
  4. LANSOPRAZOLE [Concomitant]
     Dosage: UNK
     Dates: start: 20120709, end: 20120713
  5. UNASYN [Concomitant]
     Indication: PNEUMONIA
     Dosage: UNK
     Dates: start: 20120708, end: 20120713
  6. DANTRIUM [Suspect]
     Indication: NEUROLEPTIC MALIGNANT SYNDROME
     Dosage: 25 MG, TID
     Route: 048
     Dates: start: 20120709, end: 20120719
  7. OMEPRAZOLE [Concomitant]
     Dosage: UNK
     Dates: start: 20120703, end: 20120709
  8. GASMOTIN [Concomitant]
     Dosage: UNK
     Dates: start: 20120709, end: 20120715

REACTIONS (1)
  - ATRIOVENTRICULAR BLOCK COMPLETE [None]
